FAERS Safety Report 23096105 (Version 1)
Quarter: 2023Q4

REPORT INFORMATION
  Report Type: Spontaneous
  Country: US (occurrence: None)
  Receive Date: 20231019
  Receipt Date: 20231019
  Transmission Date: 20240110
  Serious: Yes (Hospitalization)
  Sender: FDA-Public Use
  Company Number: None

PATIENT
  Age: 70 Year
  Sex: Male

DRUGS (1)
  1. CEFTAROLINE FOSAMIL [Suspect]
     Active Substance: CEFTAROLINE FOSAMIL
     Dates: end: 20230218

REACTIONS (4)
  - Diarrhoea [None]
  - Leukopenia [None]
  - Thrombocytopenia [None]
  - Eosinophilia [None]

NARRATIVE: CASE EVENT DATE: 20230213
